FAERS Safety Report 8955309 (Version 1)
Quarter: 2012Q4

REPORT INFORMATION
  Report Type: Spontaneous
  Country: IT (occurrence: None)
  Receive Date: 20121130
  Receipt Date: 20121130
  Transmission Date: 20130627
  Serious: Yes (Life-Threatening)
  Sender: FDA-Public Use
  Company Number: 2012CP000149

PATIENT
  Age: 41 Year
  Sex: Female

DRUGS (4)
  1. PERFALGAN [Suspect]
     Indication: BILIARY COLIC
     Route: 042
     Dates: start: 20121026, end: 20121026
  2. RILATEN (ROCIVERINE) [Suspect]
     Indication: BILIARY COLIC
     Route: 042
     Dates: start: 20121026, end: 20121026
  3. RIVOTRIL [Concomitant]
  4. LAMICTAL [Concomitant]

REACTIONS (3)
  - Throat tightness [None]
  - Respiratory distress [None]
  - Bronchospasm [None]
